FAERS Safety Report 19267330 (Version 2)
Quarter: 2021Q3

REPORT INFORMATION
  Report Type: Spontaneous
  Country: US (occurrence: US)
  Receive Date: 20210518
  Receipt Date: 20210826
  Transmission Date: 20211014
  Serious: Yes (Other)
  Sender: FDA-Public Use
  Company Number: US-ASTRAZENECA-2021A437976

PATIENT
  Sex: Female

DRUGS (4)
  1. NEXIUM 24HR [Suspect]
     Active Substance: ESOMEPRAZOLE MAGNESIUM
     Indication: GASTROOESOPHAGEAL REFLUX DISEASE
     Route: 048
     Dates: start: 20070101, end: 20171231
  2. NEXIUM [Suspect]
     Active Substance: ESOMEPRAZOLE MAGNESIUM
     Indication: GASTROOESOPHAGEAL REFLUX DISEASE
     Dosage: 40.0MG UNKNOWN
     Route: 048
     Dates: start: 20100126, end: 20160919
  3. NEXIUM [Suspect]
     Active Substance: ESOMEPRAZOLE MAGNESIUM
     Indication: GASTROOESOPHAGEAL REFLUX DISEASE
     Dosage: 40MG, QD
     Route: 048
     Dates: start: 20111013
  4. PANTOPRAZOLE [Suspect]
     Active Substance: PANTOPRAZOLE
     Indication: GASTROOESOPHAGEAL REFLUX DISEASE
     Dosage: 40MG40.0MG UNKNOWN
     Route: 065
     Dates: start: 20150728

REACTIONS (7)
  - Renal failure [Unknown]
  - Renal atrophy [Unknown]
  - Chronic kidney disease [Not Recovered/Not Resolved]
  - Kidney fibrosis [Unknown]
  - Renal impairment [Unknown]
  - Hypertension [Unknown]
  - Nephrosclerosis [Unknown]

NARRATIVE: CASE EVENT DATE: 201110
